FAERS Safety Report 8781039 (Version 5)
Quarter: 2014Q1

REPORT INFORMATION
  Report Type: Spontaneous
  Country: US (occurrence: US)
  Receive Date: 20120913
  Receipt Date: 20140131
  Transmission Date: 20141002
  Serious: Yes (Hospitalization, Disabling, Other)
  Sender: FDA-Public Use
  Company Number: US-009507513-1112USA01778

PATIENT
  Sex: Female
  Weight: 81.65 kg

DRUGS (4)
  1. FOSAMAX [Suspect]
     Indication: OSTEOPENIA
     Dosage: 70 MG, QW
     Route: 048
     Dates: start: 199809, end: 200809
  2. FOSAMAX PLUS D [Suspect]
     Indication: OSTEOPENIA
     Route: 048
     Dates: start: 199809, end: 201006
  3. FOSAMAX [Suspect]
     Indication: OSTEOPENIA
     Dosage: 70 MG, UNK
     Route: 048
     Dates: start: 199809, end: 201006
  4. ACTONEL [Suspect]
     Indication: OSTEOPENIA
     Dosage: 150 MG, QM
     Route: 048
     Dates: start: 200810, end: 200906

REACTIONS (44)
  - Femur fracture [Not Recovered/Not Resolved]
  - Femur fracture [Recovered/Resolved]
  - Open reduction of fracture [Not Recovered/Not Resolved]
  - Open reduction of fracture [Not Recovered/Not Resolved]
  - Surgery [Unknown]
  - Open reduction of fracture [Recovered/Resolved]
  - Hysterosalpingo-oophorectomy [Unknown]
  - Endometrial adenocarcinoma [Unknown]
  - Fall [Unknown]
  - Cholecystectomy [Unknown]
  - Femur fracture [Unknown]
  - Osteoporosis [Unknown]
  - Bursitis [Unknown]
  - Hypertension [Unknown]
  - Enchondroma [Unknown]
  - Bone disorder [Unknown]
  - Gait disturbance [Unknown]
  - Patellofemoral pain syndrome [Unknown]
  - Gait disturbance [Unknown]
  - Bursitis [Unknown]
  - Inflammation [Unknown]
  - Cataract [Unknown]
  - Arthritis [Unknown]
  - Cystocele [Unknown]
  - Stress urinary incontinence [Unknown]
  - Haematuria [Recovered/Resolved]
  - Fall [Unknown]
  - Uterine leiomyoma [Unknown]
  - Hyperlipidaemia [Unknown]
  - Bursitis [Unknown]
  - Insomnia [Unknown]
  - Dyspnoea exertional [Unknown]
  - Increased tendency to bruise [Unknown]
  - Varicose vein [Unknown]
  - Bursitis [Unknown]
  - Hip deformity [Unknown]
  - Joint swelling [Unknown]
  - Dizziness [Unknown]
  - Rash [Unknown]
  - Arthralgia [Recovered/Resolved]
  - Vertigo [Unknown]
  - Back pain [Unknown]
  - Pruritus [Unknown]
  - Arthralgia [Unknown]
